FAERS Safety Report 21277368 (Version 1)
Quarter: 2022Q3

REPORT INFORMATION
  Report Type: Spontaneous
  Country: US (occurrence: US)
  Receive Date: 20220831
  Receipt Date: 20220831
  Transmission Date: 20221027
  Serious: No
  Sender: FDA-Public Use
  Company Number: US-ABBVIE-22K-163-4339651-00

PATIENT
  Age: 58 Year
  Sex: Female
  Weight: 77.180 kg

DRUGS (6)
  1. HUMIRA [Suspect]
     Active Substance: ADALIMUMAB
     Indication: Psoriasis
     Route: 058
     Dates: end: 2021
  2. HUMIRA [Suspect]
     Active Substance: ADALIMUMAB
     Indication: Rheumatoid arthritis
     Route: 058
     Dates: start: 20220330
  3. STELARA [Suspect]
     Active Substance: USTEKINUMAB
     Indication: Product used for unknown indication
     Route: 065
     Dates: start: 2021, end: 20220329
  4. MODERNA COVID-19 VACCINE [Concomitant]
     Active Substance: ELASOMERAN
     Indication: COVID-19 immunisation
     Dosage: FIRST DOSE
     Route: 030
     Dates: start: 202102, end: 202102
  5. MODERNA COVID-19 VACCINE [Concomitant]
     Active Substance: ELASOMERAN
     Dosage: SECOND DOSE
     Route: 030
     Dates: start: 20210317, end: 20210317
  6. MODERNA COVID-19 VACCINE [Concomitant]
     Active Substance: ELASOMERAN
     Dosage: THIRD DOSE
     Route: 030
     Dates: start: 202201, end: 202201

REACTIONS (4)
  - Drug ineffective [Recovered/Resolved]
  - Pain [Recovering/Resolving]
  - Pruritus [Recovering/Resolving]
  - Wrong technique in product usage process [Not Recovered/Not Resolved]

NARRATIVE: CASE EVENT DATE: 20220330
